FAERS Safety Report 5796690-1 (Version None)
Quarter: 2008Q3

REPORT INFORMATION
  Report Type: 
  Country: None (occurrence: None)
  Receive Date: 20080701
  Receipt Date: 20080620
  Transmission Date: 20090109
  Serious: Yes (Other)
  Sender: FDA-Public Use
  Company Number: HR-JNJFOC-20080600106

PATIENT
  Sex: Male
  Weight: 76.5 kg

DRUGS (6)
  1. RISPOLEPT CONSTA [Suspect]
     Indication: SCHIZOPHRENIA
  2. TEGRETOL [Concomitant]
     Route: 065
  3. OLICARD [Concomitant]
     Route: 065
  4. OMNIC [Concomitant]
     Route: 065
  5. VASILIP [Concomitant]
     Route: 065
  6. ANDOL 100 [Concomitant]
     Route: 065

REACTIONS (1)
  - IIIRD NERVE PARESIS [None]
